FAERS Safety Report 15065072 (Version 1)
Quarter: 2018Q2

REPORT INFORMATION
  Report Type: Spontaneous
  Country: US (occurrence: US)
  Receive Date: 20180626
  Receipt Date: 20180626
  Transmission Date: 20180711
  Serious: Yes (Hospitalization)
  Sender: FDA-Public Use
  Company Number: US-BIOCOMPATIBLES UK LTD-2018BTG01665

PATIENT
  Age: 31 Year
  Sex: Male

DRUGS (2)
  1. VARITHENA [Suspect]
     Active Substance: POLIDOCANOL
     Indication: VARICOSE VEIN
     Dosage: 5ML BELOW THE KNEE
     Route: 042
     Dates: start: 20180416, end: 20180416
  2. VARITHENA [Suspect]
     Active Substance: POLIDOCANOL
     Dosage: 3ML ABOVE THE KNEE
     Dates: start: 20180416, end: 20180416

REACTIONS (3)
  - Injection site extravasation [Not Recovered/Not Resolved]
  - Injection site pain [Not Recovered/Not Resolved]
  - Pyrexia [Not Recovered/Not Resolved]

NARRATIVE: CASE EVENT DATE: 20180417
